FAERS Safety Report 6600085-8 (Version None)
Quarter: 2010Q1

REPORT INFORMATION
  Report Type: 
  Country: None (occurrence: None)
  Receive Date: 20100224
  Receipt Date: 20100217
  Transmission Date: 20100710
  Serious: Yes (Hospitalization)
  Sender: FDA-Public Use
  Company Number: PHHO2010JP02747

PATIENT
  Sex: Female
  Weight: 48 kg

DRUGS (23)
  1. AFINITOR [Suspect]
     Indication: BREAST CANCER
     Dosage: CODE NOT BROKEN
     Route: 048
     Dates: start: 20091211, end: 20091229
  2. BLINDED NO TREATMENT RECEIVED NOMED [Suspect]
     Indication: BREAST CANCER
     Dosage: CODE NOT BROKEN
     Route: 048
     Dates: start: 20091211, end: 20091229
  3. BLINDED PLACEBO COMP-PLA+ [Suspect]
     Indication: BREAST CANCER
     Dosage: CODE NOT BROKEN
     Route: 048
     Dates: start: 20091211, end: 20091229
  4. AFINITOR [Suspect]
     Dosage: NO TREATMENT
     Dates: start: 20091230, end: 20100107
  5. BLINDED NO TREATMENT RECEIVED NOMED [Suspect]
     Dosage: NO TREATMENT
     Dates: start: 20091230, end: 20100107
  6. BLINDED PLACEBO COMP-PLA+ [Suspect]
     Dosage: NO TREATMENT
     Dates: start: 20091230, end: 20100107
  7. AFINITOR [Suspect]
     Dosage: CODE NOT BROKEN
     Route: 048
     Dates: start: 20100108, end: 20100204
  8. BLINDED NO TREATMENT RECEIVED NOMED [Suspect]
     Dosage: CODE NOT BROKEN
     Route: 048
     Dates: start: 20100108, end: 20100204
  9. BLINDED PLACEBO COMP-PLA+ [Suspect]
     Dosage: CODE NOT BROKEN
     Route: 048
     Dates: start: 20100108, end: 20100204
  10. AFINITOR [Suspect]
     Dosage: NO TREATMENT
     Dates: start: 20100205, end: 20100208
  11. BLINDED NO TREATMENT RECEIVED NOMED [Suspect]
     Dosage: NO TREATMENT
     Dates: start: 20100205, end: 20100208
  12. BLINDED PLACEBO COMP-PLA+ [Suspect]
     Dosage: NO TREATMENT
     Dates: start: 20100205, end: 20100208
  13. AFINITOR [Suspect]
     Dosage: CODE NOT BROKEN
     Route: 048
     Dates: start: 20100209
  14. BLINDED NO TREATMENT RECEIVED NOMED [Suspect]
     Dosage: CODE NOT BROKEN
     Route: 048
     Dates: start: 20100209
  15. BLINDED PLACEBO COMP-PLA+ [Suspect]
     Dosage: CODE NOT BROKEN
     Route: 048
     Dates: start: 20100209
  16. ZOMETA [Suspect]
     Indication: OSTEOPOROSIS PROPHYLAXIS
     Dosage: 4MG
     Route: 042
     Dates: start: 20090702
  17. AROMASIN [Suspect]
     Indication: BREAST CANCER
     Dosage: 25MG
     Route: 048
     Dates: start: 20091211
  18. VOLTAREN [Concomitant]
     Indication: PAIN
  19. PURSENNID [Concomitant]
     Indication: CONSTIPATION
  20. NEUROTROPIN [Concomitant]
     Indication: PAIN
  21. REBAMIPIDE [Concomitant]
  22. FLOMOX [Concomitant]
  23. LOXONIN [Concomitant]

REACTIONS (4)
  - PAIN [None]
  - PERIODONTITIS [None]
  - STOMATITIS [None]
  - SWELLING [None]
